FAERS Safety Report 4996886-2 (Version None)
Quarter: 2006Q2

REPORT INFORMATION
  Report Type: 
  Country: None (occurrence: None)
  Receive Date: 20060509
  Receipt Date: 20060411
  Transmission Date: 20061013
  Serious: Yes (Life-Threatening, Hospitalization)
  Sender: FDA-Public Use
  Company Number: US-GLAXOSMITHKLINE-A0601393A

PATIENT
  Age: 20 Year
  Sex: Female
  Weight: 63.6 kg

DRUGS (4)
  1. LAMICTAL [Suspect]
     Indication: BIPOLAR DISORDER
     Route: 048
     Dates: start: 20060214, end: 20060329
  2. ZYPREXA [Suspect]
     Dosage: 5MG PER DAY
     Dates: start: 20051117
  3. LITHIUM [Suspect]
     Dosage: 900MG PER DAY
     Dates: start: 20051220
  4. WELLBUTRIN [Suspect]
     Indication: BIPOLAR DISORDER
     Dosage: 300MG PER DAY
     Route: 048
     Dates: start: 20060131, end: 20060221

REACTIONS (14)
  - BACTERAEMIA [None]
  - DEPRESSION [None]
  - DRUG INEFFECTIVE [None]
  - DRUG INTERACTION [None]
  - DYSPHAGIA [None]
  - FACE OEDEMA [None]
  - HYPOMANIA [None]
  - INJECTION SITE INFECTION [None]
  - MALAISE [None]
  - PNEUMONIA [None]
  - PRURITUS [None]
  - PYREXIA [None]
  - RASH MACULAR [None]
  - STEVENS-JOHNSON SYNDROME [None]
